FAERS Safety Report 8151600 (Version 7)
Quarter: 2014Q1

REPORT INFORMATION
  Report Type: Spontaneous
  Country: US (occurrence: US)
  Receive Date: 20110922
  Receipt Date: 20140313
  Transmission Date: 20141002
  Serious: No
  Sender: FDA-Public Use
  Company Number: US-ASTRAZENECA-2011SE22706

PATIENT
  Age: 21017 Day
  Sex: Male
  Weight: 99.8 kg

DRUGS (17)
  1. SEROQUEL [Suspect]
     Indication: BIPOLAR DISORDER
     Route: 048
     Dates: start: 201007
  2. SEROQUEL [Suspect]
     Indication: DEPRESSION
     Route: 048
     Dates: start: 201007
  3. SEROQUEL [Suspect]
     Indication: ANXIETY
     Route: 048
     Dates: start: 201007
  4. SEROQUEL [Suspect]
     Indication: ATTENTION DEFICIT/HYPERACTIVITY DISORDER
     Route: 048
     Dates: start: 201007
  5. SEROQUEL [Suspect]
     Indication: BIPOLAR DISORDER
     Route: 048
  6. SEROQUEL [Suspect]
     Indication: DEPRESSION
     Route: 048
  7. SEROQUEL [Suspect]
     Indication: ANXIETY
     Route: 048
  8. SEROQUEL [Suspect]
     Indication: ATTENTION DEFICIT/HYPERACTIVITY DISORDER
     Route: 048
  9. SEROQUEL [Suspect]
     Indication: BIPOLAR DISORDER
     Route: 048
  10. SEROQUEL [Suspect]
     Indication: DEPRESSION
     Route: 048
  11. SEROQUEL [Suspect]
     Indication: ANXIETY
     Route: 048
  12. SEROQUEL [Suspect]
     Indication: ATTENTION DEFICIT/HYPERACTIVITY DISORDER
     Route: 048
  13. SEROQUEL [Suspect]
     Indication: BIPOLAR DISORDER
     Dosage: 300MG ONE HALF TABLET IN THE MORNING , ONE HALF TABLET AT LUNCH AND 2 TABLETS AT BEDTIME
     Route: 048
     Dates: start: 2010, end: 20131108
  14. SEROQUEL [Suspect]
     Indication: DEPRESSION
     Dosage: 300MG ONE HALF TABLET IN THE MORNING , ONE HALF TABLET AT LUNCH AND 2 TABLETS AT BEDTIME
     Route: 048
     Dates: start: 2010, end: 20131108
  15. SEROQUEL [Suspect]
     Indication: ANXIETY
     Dosage: 300MG ONE HALF TABLET IN THE MORNING , ONE HALF TABLET AT LUNCH AND 2 TABLETS AT BEDTIME
     Route: 048
     Dates: start: 2010, end: 20131108
  16. SEROQUEL [Suspect]
     Indication: ATTENTION DEFICIT/HYPERACTIVITY DISORDER
     Dosage: 300MG ONE HALF TABLET IN THE MORNING , ONE HALF TABLET AT LUNCH AND 2 TABLETS AT BEDTIME
     Route: 048
     Dates: start: 2010, end: 20131108
  17. STRATTERA [Concomitant]
     Indication: ATTENTION DEFICIT/HYPERACTIVITY DISORDER
     Route: 065
     Dates: start: 2012, end: 201311

REACTIONS (17)
  - Mental disorder [Unknown]
  - Ulnar nerve injury [Unknown]
  - Amnesia [Unknown]
  - Impaired work ability [Unknown]
  - Malaise [Unknown]
  - Adverse event [Unknown]
  - Insomnia [Unknown]
  - Burnout syndrome [Unknown]
  - Withdrawal syndrome [Unknown]
  - Depressed mood [Unknown]
  - Abnormal behaviour [Unknown]
  - Frustration [Unknown]
  - Disturbance in attention [Unknown]
  - Anxiety [Unknown]
  - Communication disorder [Unknown]
  - Drug dose omission [Not Recovered/Not Resolved]
  - Off label use [Unknown]
